FAERS Safety Report 5836331-8 (Version None)
Quarter: 2008Q3

REPORT INFORMATION
  Report Type: 
  Country: None (occurrence: None)
  Receive Date: 20080801
  Receipt Date: 20080630
  Transmission Date: 20090109
  Serious: Yes (Other)
  Sender: FDA-Public Use
  Company Number: PHEH2008US05800

PATIENT
  Sex: Female

DRUGS (1)
  1. EXELON [Suspect]
     Dosage: , TRANSDERMAL
     Route: 062

REACTIONS (1)
  - CONVULSION [None]
